FAERS Safety Report 6853934-2 (Version None)
Quarter: 2010Q3

REPORT INFORMATION
  Report Type: 
  Country: None (occurrence: None)
  Receive Date: 20100717
  Receipt Date: 20071220
  Transmission Date: 20110219
  Serious: No
  Sender: FDA-Public Use
  Company Number: US-PFIZER INC-2007106735

PATIENT
  Sex: Female
  Weight: 62.1 kg

DRUGS (5)
  1. CHANTIX [Suspect]
     Indication: SMOKING CESSATION THERAPY
     Route: 048
     Dates: start: 20071129
  2. ZOLOFT [Suspect]
     Indication: DEPRESSION
     Route: 048
     Dates: start: 20040101
  3. ACETYLSALICYLIC ACID [Concomitant]
     Dates: start: 20030101
  4. ESTRADIOL [Concomitant]
     Indication: HYSTERECTOMY
     Dates: start: 20020101
  5. NICOTINE [Concomitant]

REACTIONS (9)
  - ABNORMAL DREAMS [None]
  - ANXIETY [None]
  - BLOOD PRESSURE INCREASED [None]
  - DEPRESSION [None]
  - EUPHORIC MOOD [None]
  - FLATULENCE [None]
  - HEART RATE INCREASED [None]
  - INSOMNIA [None]
  - TOBACCO USER [None]
